FAERS Safety Report 13456348 (Version 1)
Quarter: 2017Q2

REPORT INFORMATION
  Report Type: Report from Study
  Country: CH (occurrence: CH)
  Receive Date: 20170419
  Receipt Date: 20170419
  Transmission Date: 20170830
  Serious: Yes (Hospitalization)
  Sender: FDA-Public Use
  Company Number: CH-ROCHE-1445402

PATIENT
  Age: 57 Year
  Sex: Female
  Weight: 54 kg

DRUGS (4)
  1. OCRELIZUMAB [Suspect]
     Active Substance: OCRELIZUMAB
     Dosage: THERAPY RESTARTED ON 22/JAN/2017 (CYCLE 9; WEEK 242)
     Route: 042
     Dates: start: 20150122
  2. PLACEBO [Suspect]
     Active Substance: UNSPECIFIED INGREDIENT
     Indication: RELAPSING-REMITTING MULTIPLE SCLEROSIS
     Dosage: DUAL INFUSIONS OF BLINDED OCRELIZUMAB WERE GIVEN ON DAYS 1 AND 15 FOR THE FIRST 24-WEEK TREATMENT CY
     Route: 042
     Dates: start: 20090326
  3. OCRELIZUMAB [Suspect]
     Active Substance: OCRELIZUMAB
     Indication: RELAPSING-REMITTING MULTIPLE SCLEROSIS
     Dosage: DOSE AND FREQUENCY, AS PER PROTOCOL: DUAL INFUSIONS OF 300MG OCRELIZUMAB ON DAYS 1 AND 15 FOR THE FI
     Route: 042
     Dates: start: 20130416
  4. SPIRIVA [Concomitant]
     Active Substance: TIOTROPIUM BROMIDE MONOHYDRATE
     Route: 065
     Dates: start: 20131031

REACTIONS (1)
  - Pneumonia [Recovered/Resolved with Sequelae]

NARRATIVE: CASE EVENT DATE: 20140701
